FAERS Safety Report 7358041-0 (Version None)
Quarter: 2011Q1

REPORT INFORMATION
  Report Type: 
  Country: None (occurrence: None)
  Receive Date: 20110317
  Receipt Date: 20110310
  Transmission Date: 20110831
  Serious: Yes (Other)
  Sender: FDA-Public Use
  Company Number: US-TEVA-271000USA

PATIENT
  Age: 21 Year
  Sex: Female
  Weight: 69.462 kg

DRUGS (3)
  1. NEXT CHOICE [Suspect]
     Dosage: 1ST TAB WITHIN 72HRS;2ND TAB 16 HOURS LATER
     Route: 048
     Dates: start: 20110227, end: 20110228
  2. BUPROPION [Concomitant]
  3. PLAN B [Suspect]
     Indication: CONTRACEPTION
     Route: 048
     Dates: start: 20110101

REACTIONS (2)
  - VAGINAL DISCHARGE [None]
  - NAUSEA [None]
